FAERS Safety Report 9686246 (Version 2)
Quarter: 2013Q4

REPORT INFORMATION
  Report Type: Spontaneous
  Country: BR (occurrence: BR)
  Receive Date: 20131113
  Receipt Date: 20131113
  Transmission Date: 20140711
  Serious: Yes (Other)
  Sender: FDA-Public Use
  Company Number: BR-AMGEN-BRASP2012031228

PATIENT
  Age: 52 Year
  Sex: Female
  Weight: 73 kg

DRUGS (7)
  1. ENBREL [Suspect]
     Indication: RHEUMATOID ARTHRITIS
     Dosage: 50 MG, WEEKLY
     Route: 058
     Dates: start: 20101103, end: 20130626
  2. CORTICOSTEROID NOS [Concomitant]
     Dosage: 10 MG, QD
  3. CALCIUM [Concomitant]
     Dosage: UNK, QD
  4. VITAMIN D                          /00107901/ [Concomitant]
     Dosage: UNK, QD
  5. PURAN T4 [Concomitant]
     Dosage: 25 MG, 1X/DAY
  6. BENICAR HCT [Concomitant]
     Indication: HYPERTENSION
     Dosage: UNK
  7. PREDSIM [Concomitant]
     Dosage: UNK

REACTIONS (8)
  - Skin necrosis [Unknown]
  - Skin discolouration [Unknown]
  - Skin disorder [Unknown]
  - Gastritis [Unknown]
  - Injection site pain [Unknown]
  - Injection site pruritus [Unknown]
  - Injection site erythema [Unknown]
  - Paraesthesia [Unknown]
